FAERS Safety Report 7465616-7 (Version None)
Quarter: 2011Q2

REPORT INFORMATION
  Report Type: 
  Country: None (occurrence: None)
  Receive Date: 20110509
  Receipt Date: 20110502
  Transmission Date: 20111010
  Serious: Yes (Other)
  Sender: FDA-Public Use
  Company Number: US-SANOFI-AVENTIS-2011SA027635

PATIENT
  Sex: Female

DRUGS (11)
  1. MULTAQ [Suspect]
     Indication: ATRIAL FIBRILLATION
     Route: 048
     Dates: start: 20100101
  2. MULTAQ [Suspect]
     Route: 048
  3. MULTAQ [Suspect]
     Route: 048
  4. MULTAQ [Suspect]
     Route: 048
  5. PLAVIX [Suspect]
     Route: 048
     Dates: start: 20070101
  6. VITAMINS [Concomitant]
  7. MULTAQ [Suspect]
     Route: 048
  8. MULTAQ [Suspect]
     Route: 048
     Dates: start: 20100101
  9. ASPIRIN [Suspect]
     Dosage: 81MG 2-3 TIMES A WEEK
  10. ZOCOR [Concomitant]
  11. PLAVIX [Suspect]
     Indication: STENT PLACEMENT
     Route: 048
     Dates: start: 20070101

REACTIONS (5)
  - UNDERDOSE [None]
  - PAIN IN EXTREMITY [None]
  - ATRIAL FIBRILLATION [None]
  - CONTUSION [None]
  - HAEMORRHAGE [None]
